FAERS Safety Report 4872572-4 (Version None)
Quarter: 2006Q1

REPORT INFORMATION
  Report Type: 
  Country: None (occurrence: None)
  Receive Date: 20060103
  Receipt Date: 20051222
  Transmission Date: 20060701
  Serious: Yes (Hospitalization)
  Sender: FDA-Public Use
  Company Number: FR200512003715

PATIENT
  Age: 60 Year
  Sex: Male

DRUGS (5)
  1. ALIMTA [Suspect]
     Indication: LUNG NEOPLASM MALIGNANT
     Dosage: 1000 MG, OTHER, INTRAVENOUS
     Route: 042
  2. BISOPROLOL (BISOPROLOL) [Concomitant]
  3. ASPIRIN [Concomitant]
  4. ATORVASTATIN CALCIUM [Concomitant]
  5. OMEPRAZOLE [Concomitant]

REACTIONS (8)
  - ASTHENIA [None]
  - ATRIAL FIBRILLATION [None]
  - DYSPNOEA [None]
  - HEADACHE [None]
  - HYPERTENSION [None]
  - MALAISE [None]
  - SENSE OF OPPRESSION [None]
  - VOMITING [None]
